FAERS Safety Report 7384512-7 (Version None)
Quarter: 2011Q1

REPORT INFORMATION
  Report Type: 
  Country: None (occurrence: None)
  Receive Date: 20110321
  Receipt Date: 20110124
  Transmission Date: 20110831
  Serious: Yes (Hospitalization)
  Sender: FDA-Public Use
  Company Number: OMX-2011-00005

PATIENT
  Sex: Female

DRUGS (2)
  1. EVICEL [Suspect]
     Indication: POSTOPERATIVE ADHESION
  2. APPLICATOR [Suspect]
     Indication: POSTOPERATIVE ADHESION

REACTIONS (4)
  - POSTOPERATIVE ADHESION [None]
  - DRUG HYPERSENSITIVITY [None]
  - CERVIX DISORDER [None]
  - OFF LABEL USE [None]
